FAERS Safety Report 9254701 (Version 1)
Quarter: 2013Q2

REPORT INFORMATION
  Report Type: Spontaneous
  Country: US (occurrence: None)
  Receive Date: 20130422
  Receipt Date: 20130422
  Transmission Date: 20140414
  Serious: Yes (Disabling)
  Sender: FDA-Public Use
  Company Number: None

PATIENT
  Age: 70 Year
  Sex: Female
  Weight: 20.64 kg

DRUGS (1)
  1. CALCIUM, MAGNESIUM, ZINC [Suspect]
     Dosage: ONE CAPLET PER DAY ORAL?JULY THRU SEPTEMBER (70 DAYS)
     Route: 048

REACTIONS (3)
  - Gait disturbance [None]
  - Muscle spasms [None]
  - Metal poisoning [None]
